FAERS Safety Report 6148237-8 (Version None)
Quarter: 2009Q2

REPORT INFORMATION
  Report Type: 
  Country: None (occurrence: None)
  Receive Date: 20090402
  Receipt Date: 20081205
  Transmission Date: 20091009
  Serious: No
  Sender: FDA-Public Use
  Company Number: 1000004670

PATIENT
  Age: 65 Year
  Sex: Male

DRUGS (2)
  1. BYSTOLIC [Suspect]
     Indication: BLOOD PRESSURE INCREASED
     Dosage: ORAL
     Route: 048
     Dates: start: 20080101
  2. DIOVAN [Concomitant]

REACTIONS (2)
  - DRY EYE [None]
  - VISUAL IMPAIRMENT [None]
